FAERS Safety Report 15832327 (Version 1)
Quarter: 2020Q3

REPORT INFORMATION
  Report Type: Report from Study
  Country: TW (occurrence: TW)
  Receive Date: 20190116
  Receipt Date: 20190116
  Transmission Date: 20201104
  Serious: Yes (Death, Hospitalization)
  Sender: FDA-Public Use
  Company Number: TW-ACTELION-A-CH2018-179415

PATIENT
  Age: 50 Year
  Sex: Female
  Weight: 39.3 kg

DRUGS (6)
  1. SILDENAFIL. [Concomitant]
     Active Substance: SILDENAFIL
     Dosage: UNK
     Dates: start: 20131120
  2. MACITENTAN [Suspect]
     Active Substance: MACITENTAN
     Indication: PULMONARY ARTERIAL HYPERTENSION
     Dosage: 10 MG, QD
     Route: 048
     Dates: start: 20120208
  3. SACUBITRIL W/VALSARTAN [Concomitant]
     Active Substance: SACUBITRIL\VALSARTAN
     Dosage: 48 MG/51 MG (100 ENTRESTO FC 100 MG/TAB)
     Dates: start: 20180702
  4. MACITENTAN [Suspect]
     Active Substance: MACITENTAN
     Indication: PULMONARY ARTERIAL HYPERTENSION
     Dosage: 10 MG, QD
     Route: 048
     Dates: start: 20120208
  5. FUROSEMIDE. [Concomitant]
     Active Substance: FUROSEMIDE
     Indication: PROPHYLAXIS
     Dosage: UNK
     Dates: start: 20180509
  6. LANOXIN [Concomitant]
     Active Substance: DIGOXIN
     Dosage: UNK
     Dates: start: 20111221

REACTIONS (16)
  - Chest tube insertion [Recovered/Resolved]
  - Blood creatinine increased [Unknown]
  - Poor quality sleep [Unknown]
  - Anxiety [Unknown]
  - Cyanosis [Unknown]
  - Hypotension [Unknown]
  - Haematocrit increased [Unknown]
  - Cardiac failure [Fatal]
  - Dyspnoea [Not Recovered/Not Resolved]
  - Pleural effusion [Unknown]
  - Aspiration pleural cavity [Unknown]
  - Discomfort [Recovered/Resolved]
  - Loss of consciousness [Unknown]
  - Pulmonary hypertensive crisis [Unknown]
  - Oxygen saturation decreased [Unknown]
  - Condition aggravated [Unknown]

NARRATIVE: CASE EVENT DATE: 20180925
